FAERS Safety Report 6436463-X (Version None)
Quarter: 2009Q4

REPORT INFORMATION
  Report Type: 
  Country: None (occurrence: None)
  Receive Date: 20091111
  Receipt Date: 20091103
  Transmission Date: 20100525
  Serious: Yes (Hospitalization, Disabling, Other)
  Sender: FDA-Public Use
  Company Number: FR-TEVA-214417ISR

PATIENT
  Sex: Male
  Weight: 57 kg

DRUGS (4)
  1. FOLINIC ACID [Suspect]
     Indication: COLORECTAL CANCER
     Dates: start: 20061219
  2. FLUOROURACIL [Suspect]
     Indication: COLORECTAL CANCER
     Route: 040
     Dates: start: 20061219
  3. FLUOROURACIL [Suspect]
     Route: 042
     Dates: start: 20061219, end: 20061221
  4. IRINOTECAN HCL [Suspect]
     Indication: COLORECTAL CANCER
     Dates: start: 20061219

REACTIONS (1)
  - FEBRILE NEUTROPENIA [None]
